FAERS Safety Report 18423844 (Version 1)
Quarter: 2020Q4

REPORT INFORMATION
  Report Type: Spontaneous
  Country: US (occurrence: US)
  Receive Date: 20201024
  Receipt Date: 20201024
  Transmission Date: 20210114
  Serious: No
  Sender: FDA-Public Use
  Company Number: US-AMGEN-USASP2020171352

PATIENT
  Sex: Female

DRUGS (3)
  1. BEMPEDOIC ACID. [Concomitant]
     Active Substance: BEMPEDOIC ACID
     Dosage: UNK
  2. REPATHA [Suspect]
     Active Substance: EVOLOCUMAB
     Indication: TYPE IIA HYPERLIPIDAEMIA
     Dosage: UNK
     Route: 065
     Dates: start: 2017
  3. ESTROGEN [Concomitant]
     Active Substance: ESTROGENS

REACTIONS (1)
  - Low density lipoprotein increased [Unknown]
